FAERS Safety Report 7879283-1 (Version None)
Quarter: 2011Q4

REPORT INFORMATION
  Report Type: 
  Country: None (occurrence: None)
  Receive Date: 20111101
  Receipt Date: 20111021
  Transmission Date: 20120403
  Serious: Yes (Hospitalization)
  Sender: FDA-Public Use
  Company Number: US-BAYER-2011-048689

PATIENT
  Age: 23 Year
  Sex: Female
  Weight: 102.4 kg

DRUGS (14)
  1. YASMIN [Suspect]
     Dosage: UNK
     Dates: start: 20050101, end: 20090101
  2. DROSPIRENONE AND ETHINYL ESTRADIOL [Suspect]
     Dosage: UNK
     Dates: start: 20050101, end: 20090101
  3. ELAVIL [Concomitant]
  4. COUMADIN [Concomitant]
     Dosage: 5 MG, UNK
  5. AZITHROMYCIN [Concomitant]
  6. DROSPIRENONE AND ETHINYL ESTRADIOL [Suspect]
  7. LOVENOX [Concomitant]
  8. XANAX [Concomitant]
  9. LEXAPRO [Concomitant]
  10. TRAMADOL HCL [Concomitant]
  11. TYLENOL-500 [Concomitant]
     Indication: PAIN
  12. TORADOL [Concomitant]
     Indication: PAIN
  13. PAXIL [Concomitant]
  14. EFFEXOR [Concomitant]

REACTIONS (5)
  - PAIN [None]
  - MENTAL DISORDER [None]
  - PULMONARY EMBOLISM [None]
  - DEEP VEIN THROMBOSIS [None]
  - DEPRESSION [None]
